FAERS Safety Report 5404323-9 (Version None)
Quarter: 2007Q3

REPORT INFORMATION
  Report Type: 
  Country: None (occurrence: None)
  Receive Date: 20070713
  Receipt Date: 20070613
  Transmission Date: 20080115
  Serious: Yes (Other)
  Sender: FDA-Public Use
  Company Number: 2007049338

PATIENT
  Age: 23 Year
  Sex: Female

DRUGS (1)
  1. DEPO-SUBQ PROVERA 104 [Suspect]
     Indication: CONTRACEPTION
     Dosage: 104 MG (104 MG, FIRST INJECTION), SUBCUTANEOUS
     Route: 058
     Dates: start: 20060901, end: 20060901

REACTIONS (1)
  - INJECTION SITE REACTION [None]
